FAERS Safety Report 7423824-5 (Version None)
Quarter: 2011Q2

REPORT INFORMATION
  Report Type: 
  Country: None (occurrence: None)
  Receive Date: 20110419
  Receipt Date: 20110407
  Transmission Date: 20111010
  Serious: Yes (Hospitalization, Disabling)
  Sender: FDA-Public Use
  Company Number: PHHY2011IL29261

PATIENT
  Age: 65 Year
  Sex: Male

DRUGS (1)
  1. GLEEVEC [Suspect]
     Indication: CHRONIC MYELOID LEUKAEMIA
     Dosage: 400 MG, UNK
     Route: 048

REACTIONS (5)
  - EYE INFECTION [None]
  - VISUAL ACUITY REDUCED [None]
  - RETINOPATHY [None]
  - BLINDNESS [None]
  - CONCOMITANT DISEASE AGGRAVATED [None]
